FAERS Safety Report 4609504-X (Version None)
Quarter: 2005Q1

REPORT INFORMATION
  Report Type: 
  Country: None (occurrence: None)
  Receive Date: 20050314
  Receipt Date: 20050314
  Transmission Date: 20050727
  Serious: Yes (Hospitalization)
  Sender: FDA-Public Use
  Company Number: None

PATIENT
  Age: 55 Year
  Sex: Male

DRUGS (8)
  1. WARFARIN [Suspect]
     Indication: THROMBOSIS PROPHYLAXIS
     Dosage: SEE IMAGE
     Dates: start: 20030701
  2. ASPIRIN [Concomitant]
  3. FES04 [Concomitant]
  4. HYDROCHLOROTHIAZIDE [Concomitant]
  5. VIAGRA [Concomitant]
  6. OSCAL [Concomitant]
  7. TRAMADOL HCL [Concomitant]
  8. FELODIPINE [Concomitant]

REACTIONS (1)
  - GASTROINTESTINAL HAEMORRHAGE [None]
